FAERS Safety Report 17287215 (Version 2)
Quarter: 2020Q1

REPORT INFORMATION
  Report Type: Spontaneous
  Country: AU (occurrence: AU)
  Receive Date: 20200120
  Receipt Date: 20200128
  Transmission Date: 20200409
  Serious: Yes (Death, Hospitalization, Other)
  Sender: FDA-Public Use
  Company Number: AU-ACTELION-A-CH2017-159274

PATIENT
  Age: 72 Year
  Sex: Female

DRUGS (3)
  1. TADALAFIL. [Suspect]
     Active Substance: TADALAFIL
     Indication: PULMONARY ARTERIAL HYPERTENSION
     Dosage: 40 MG, QD
     Route: 048
     Dates: start: 20170818, end: 20170906
  2. TADALAFIL. [Suspect]
     Active Substance: TADALAFIL
     Dosage: 20 MG, QD
     Route: 048
     Dates: start: 20170907
  3. OPSUMIT [Suspect]
     Active Substance: MACITENTAN
     Indication: PULMONARY ARTERIAL HYPERTENSION
     Dosage: 10 MG, QD
     Route: 048
     Dates: start: 20170504

REACTIONS (6)
  - Gout [Unknown]
  - Thirst [Unknown]
  - General physical health deterioration [Unknown]
  - Feeling abnormal [Unknown]
  - Pulmonary arterial hypertension [Fatal]
  - Disease progression [Fatal]

NARRATIVE: CASE EVENT DATE: 20170906
